FAERS Safety Report 15652094 (Version 1)
Quarter: 2018Q4

REPORT INFORMATION
  Report Type: Spontaneous
  Country: MX (occurrence: MX)
  Receive Date: 20181123
  Receipt Date: 20181123
  Transmission Date: 20190205
  Serious: Yes (Death)
  Sender: FDA-Public Use
  Company Number: MX-ASTRAZENECA-2018SF53245

PATIENT
  Age: 22847 Day
  Sex: Male
  Weight: 62 kg

DRUGS (1)
  1. TAGRISSO [Suspect]
     Active Substance: OSIMERTINIB
     Indication: LUNG NEOPLASM MALIGNANT
     Dosage: 40.0UG UNKNOWN
     Route: 048
     Dates: start: 20180901, end: 20180930

REACTIONS (4)
  - Drug interaction [Unknown]
  - Pleural effusion [Fatal]
  - Dehydration [Fatal]
  - Thrombocytopenia [Fatal]

NARRATIVE: CASE EVENT DATE: 20180901
